FAERS Safety Report 25137164 (Version 1)
Quarter: 2025Q1

REPORT INFORMATION
  Report Type: Report from Study
  Country: US (occurrence: US)
  Receive Date: 20250329
  Receipt Date: 20250329
  Transmission Date: 20250409
  Serious: Yes (Other)
  Sender: ABBVIE
  Company Number: US-ABBVIE-6197632

PATIENT
  Age: 50 Year
  Sex: Female

DRUGS (2)
  1. RINVOQ [Suspect]
     Active Substance: UPADACITINIB
     Indication: Psoriatic arthropathy
     Dosage: STRENGTH;15 MG
     Route: 048
     Dates: start: 2023
  2. RINVOQ [Suspect]
     Active Substance: UPADACITINIB
     Indication: Psoriatic arthropathy
     Dosage: STRENGTH;15 MG
     Route: 048
     Dates: start: 20241225

REACTIONS (3)
  - Spinal laminectomy [Unknown]
  - Infection [Unknown]
  - Procedural site reaction [Unknown]

NARRATIVE: CASE EVENT DATE: 20240925
